FAERS Safety Report 5693206-5 (Version None)
Quarter: 2008Q2

REPORT INFORMATION
  Report Type: 
  Country: None (occurrence: None)
  Receive Date: 20080403
  Receipt Date: 20080331
  Transmission Date: 20081010
  Serious: Yes (Hospitalization)
  Sender: FDA-Public Use
  Company Number: US-KINGPHARMUSA00001-K200800369

PATIENT

DRUGS (7)
  1. ALTACE [Suspect]
     Dosage: 10 MG, QD
     Dates: start: 20060101
  2. ALTACE [Suspect]
     Dosage: 10 MG, BID
     Dates: start: 20060101
  3. NITRENDIPINE [Concomitant]
  4. INDAPAMIDE [Concomitant]
  5. INDAPAMIDE [Concomitant]
  6. BISOPROLOL FUMARATE [Concomitant]
  7. DIOVAN                             /01319601/ [Concomitant]

REACTIONS (8)
  - BLOOD PRESSURE INCREASED [None]
  - COUGH [None]
  - DRUG INEFFECTIVE [None]
  - DYSPNOEA [None]
  - ERYTHEMA [None]
  - FATIGUE [None]
  - GASTROINTESTINAL DISORDER [None]
  - RASH PUSTULAR [None]
